FAERS Safety Report 5649663-3 (Version None)
Quarter: 2008Q1

REPORT INFORMATION
  Report Type: 
  Country: None (occurrence: None)
  Receive Date: 20080304
  Receipt Date: 20080221
  Transmission Date: 20080703
  Serious: Yes (Other)
  Sender: FDA-Public Use
  Company Number: ID-PFIZER INC-2008016412

PATIENT
  Age: 60 Year
  Sex: Female

DRUGS (1)
  1. NORVASC [Suspect]
     Indication: HYPERTENSION
     Dosage: DAILY DOSE:5MG-TEXT:5 MG-FREQ:ONCE DAILY
     Route: 048
     Dates: start: 20060101, end: 20080218

REACTIONS (1)
  - APHTHOUS STOMATITIS [None]
